FAERS Safety Report 6736461-2 (Version None)
Quarter: 2010Q2

REPORT INFORMATION
  Report Type: 
  Country: None (occurrence: None)
  Receive Date: 20100521
  Receipt Date: 20100512
  Transmission Date: 20101027
  Serious: Yes (Hospitalization, Other)
  Sender: FDA-Public Use
  Company Number: BR-SANOFI-AVENTIS-2010SA027752

PATIENT
  Sex: Male
  Weight: 58 kg

DRUGS (4)
  1. LANTUS [Suspect]
     Indication: TYPE 1 DIABETES MELLITUS
  2. HUMALOG [Concomitant]
     Indication: TYPE 1 DIABETES MELLITUS
     Dosage: ACCORDING TO GLYCEMIC RESULTS
  3. JANUVIA [Concomitant]
     Indication: TYPE 1 DIABETES MELLITUS
     Route: 048
  4. ASPIRIN [Concomitant]
     Indication: PROPHYLAXIS
     Route: 048

REACTIONS (5)
  - ARTERIAL OCCLUSIVE DISEASE [None]
  - CATARACT [None]
  - CORNEAL STAINING [None]
  - EYE HAEMORRHAGE [None]
  - PAIN IN EXTREMITY [None]
